FAERS Safety Report 25443383 (Version 1)
Quarter: 2025Q2

REPORT INFORMATION
  Report Type: Spontaneous
  Country: JP (occurrence: JP)
  Receive Date: 20250617
  Receipt Date: 20250617
  Transmission Date: 20250717
  Serious: Yes (Other)
  Sender: AMGEN
  Company Number: JP-TAKEDA-2025TJP005659

PATIENT
  Age: 7 Decade
  Sex: Male

DRUGS (5)
  1. VECTIBIX [Suspect]
     Active Substance: PANITUMUMAB
     Indication: Colon cancer
     Route: 065
  2. IRINOTECAN HYDROCHLORIDE [Concomitant]
     Active Substance: IRINOTECAN HYDROCHLORIDE
     Route: 065
  3. FLUOROURACIL [Concomitant]
     Active Substance: FLUOROURACIL
     Route: 065
  4. LEVOLEUCOVORIN CALCIUM [Concomitant]
     Active Substance: LEVOLEUCOVORIN CALCIUM
     Route: 065
  5. OXALIPLATIN [Concomitant]
     Active Substance: OXALIPLATIN
     Route: 065

REACTIONS (1)
  - Nephrotic syndrome [Recovering/Resolving]
